FAERS Safety Report 11533964 (Version 2)
Quarter: 2015Q3

REPORT INFORMATION
  Report Type: Spontaneous
  Country: MX (occurrence: MX)
  Receive Date: 20150922
  Receipt Date: 20150925
  Transmission Date: 20151125
  Serious: Yes (Hospitalization, Other)
  Sender: FDA-Public Use
  Company Number: MX-AMGEN-MEXSP2015096495

PATIENT
  Age: 56 Year
  Sex: Female
  Weight: 65 kg

DRUGS (2)
  1. CAPTOPRIL. [Concomitant]
     Active Substance: CAPTOPRIL
     Indication: BLOOD PRESSURE MEASUREMENT
     Dosage: UNK
  2. ENBREL [Suspect]
     Active Substance: ETANERCEPT
     Indication: RHEUMATOID ARTHRITIS
     Dosage: 50 MG 1 DOSE OF ETANERCEPT EVERY MONTH
     Route: 058
     Dates: start: 2009, end: 2012

REACTIONS (7)
  - Malaise [Recovered/Resolved]
  - Abdominal neoplasm [Recovered/Resolved with Sequelae]
  - Abasia [Unknown]
  - Peripheral swelling [Recovered/Resolved]
  - Pain [Unknown]
  - Nausea [Recovered/Resolved]
  - Drug ineffective [Recovered/Resolved]

NARRATIVE: CASE EVENT DATE: 2012
